FAERS Safety Report 5066499-5 (Version None)
Quarter: 2006Q3

REPORT INFORMATION
  Report Type: 
  Country: None (occurrence: None)
  Receive Date: 20060801
  Receipt Date: 20060720
  Transmission Date: 20061208
  Serious: Yes (Disabling, Other)
  Sender: FDA-Public Use
  Company Number: FR-BRISTOL-MYERS SQUIBB COMPANY-13453782

PATIENT
  Age: 73 Year
  Sex: Female

DRUGS (1)
  1. VASTEN TABS [Suspect]
     Indication: BLOOD CHOLESTEROL INCREASED
     Route: 048

REACTIONS (4)
  - ARTHRALGIA [None]
  - CHEST PAIN [None]
  - FATIGUE [None]
  - PALPITATIONS [None]
